FAERS Safety Report 5950003-0 (Version None)
Quarter: 2008Q4

REPORT INFORMATION
  Report Type: 
  Country: None (occurrence: None)
  Receive Date: 20081112
  Receipt Date: 20081106
  Transmission Date: 20090506
  Serious: Yes (Death, Hospitalization)
  Sender: FDA-Public Use
  Company Number: JP-AVENTIS-200813302JP

PATIENT
  Age: 76 Year
  Sex: Male
  Weight: 61.3 kg

DRUGS (10)
  1. TAXOTERE [Suspect]
     Route: 041
     Dates: start: 20080909, end: 20080929
  2. PREDNISOLONE [Concomitant]
     Route: 048
     Dates: start: 20080909, end: 20081022
  3. NOVAMIN                            /00013301/ [Concomitant]
     Route: 048
     Dates: start: 20080912, end: 20081022
  4. MAGMITT [Concomitant]
     Route: 048
     Dates: start: 20080912, end: 20081022
  5. TENORMIN [Concomitant]
     Indication: ATRIAL FIBRILLATION
     Route: 048
     Dates: end: 20081022
  6. HALFDIGOXIN [Concomitant]
     Indication: ATRIAL FIBRILLATION
     Route: 048
     Dates: end: 20081022
  7. LOXOPROFEN [Concomitant]
     Indication: PAIN
     Route: 048
     Dates: start: 20080818, end: 20081022
  8. OXYCONTIN [Concomitant]
     Indication: PAIN
     Route: 048
     Dates: start: 20080913, end: 20081022
  9. CIPROXAN [Concomitant]
     Route: 048
     Dates: start: 20081008, end: 20081020
  10. DEXART [Concomitant]
     Route: 042

REACTIONS (1)
  - INTERSTITIAL LUNG DISEASE [None]
